FAERS Safety Report 9053880 (Version 1)
Quarter: 2013Q1

REPORT INFORMATION
  Report Type: Report from Study
  Country: US (occurrence: US)
  Receive Date: 20130206
  Receipt Date: 20130206
  Transmission Date: 20140127
  Serious: Yes (Hospitalization)
  Sender: FDA-Public Use
  Company Number: US-ACTELION-A-NJ2012-75142

PATIENT
  Age: 46 Year
  Sex: Female

DRUGS (14)
  1. VELETRI [Suspect]
     Indication: PULMONARY ARTERIAL HYPERTENSION
     Dosage: 19.5 NG/KG, PER MIN
     Route: 041
     Dates: start: 20120817
  2. LETAIRIS [Concomitant]
     Dosage: 10 MG, QD
     Route: 048
     Dates: start: 20090226
  3. COUMADIN [Concomitant]
     Dosage: 7.5 MG, QD
     Route: 048
  4. FUROSEMIDE [Concomitant]
     Dosage: 20 MG, UNK
     Route: 048
  5. OXYGEN [Concomitant]
  6. DIGOXIN [Concomitant]
     Dosage: 0.125 MG, QD
  7. SINGULAIR [Concomitant]
     Dosage: 10 MG, QD
     Route: 048
  8. ESOMEPRAZOLE MAGNESIUM [Concomitant]
     Dosage: 40 MG, QD
     Route: 048
  9. FERROUS SULFATE [Concomitant]
     Dosage: 325 (65 FE) MG
     Route: 048
  10. DIPHENHYDRAMINE [Concomitant]
     Dosage: 50 MG, Q4HRS
     Route: 048
  11. OLOPATADINE HYDROCHLORIDE [Concomitant]
     Dosage: 0.2 %, UNK
     Route: 047
  12. FLUTICASONE PROPIONATE [Concomitant]
     Dosage: 50 MCG/ACT
  13. CLOTRIMAZOLE W/BETAMETHASONE DIPROPIONAT [Concomitant]
     Dosage: 1-0.05%
     Route: 058
  14. MULTIPLE VITAMINS [Concomitant]

REACTIONS (18)
  - Drug hypersensitivity [Recovering/Resolving]
  - Overdose [Recovering/Resolving]
  - Pallor [Recovering/Resolving]
  - Generalised erythema [Recovering/Resolving]
  - Feeling abnormal [Recovering/Resolving]
  - Fatigue [Recovering/Resolving]
  - Insomnia [Recovering/Resolving]
  - Headache [Recovering/Resolving]
  - Pain in jaw [Recovering/Resolving]
  - Palpitations [Recovering/Resolving]
  - Flushing [Recovering/Resolving]
  - Dizziness [Recovering/Resolving]
  - Anxiety [Recovering/Resolving]
  - Nausea [Recovering/Resolving]
  - Dyspnoea [Recovering/Resolving]
  - Chest discomfort [Recovering/Resolving]
  - Decreased appetite [Recovering/Resolving]
  - Exercise tolerance decreased [Recovering/Resolving]
